FAERS Safety Report 8307398-2 (Version None)
Quarter: 2012Q2

REPORT INFORMATION
  Report Type: 
  Country: None (occurrence: None)
  Receive Date: 20120424
  Receipt Date: 20120418
  Transmission Date: 20120825
  Serious: Yes (Hospitalization)
  Sender: FDA-Public Use
  Company Number: FR-PFIZER INC-2012095545

PATIENT
  Age: 72 Year
  Sex: Female

DRUGS (5)
  1. QUESTRAN [Concomitant]
  2. NEXIUM [Concomitant]
  3. ASPIRIN [Concomitant]
  4. AROMASIN [Suspect]
     Indication: BREAST CANCER
     Dosage: UNK
     Route: 048
     Dates: start: 20110901, end: 20111201
  5. RAMIPRIL [Concomitant]

REACTIONS (3)
  - ARTHRALGIA [None]
  - GAIT DISTURBANCE [None]
  - PARAESTHESIA [None]
